FAERS Safety Report 8272923-7 (Version None)
Quarter: 2012Q2

REPORT INFORMATION
  Report Type: 
  Country: None (occurrence: None)
  Receive Date: 20120406
  Receipt Date: 20120406
  Transmission Date: 20120825
  Serious: Yes (Hospitalization, Other)
  Sender: FDA-Public Use
  Company Number: None

PATIENT
  Age: 71 Year
  Sex: Female
  Weight: 55.3388 kg

DRUGS (1)
  1. NORVASC [Suspect]
     Indication: BLOOD PRESSURE
     Dosage: 5 MG TABLET TWICE DAY, GOT INFECTION/DIDNT KNOW WHAT IT WAS
     Dates: start: 20020101

REACTIONS (2)
  - FUNGAL SKIN INFECTION [None]
  - CELLULITIS [None]
